FAERS Safety Report 6427798-5 (Version None)
Quarter: 2009Q4

REPORT INFORMATION
  Report Type: 
  Country: None (occurrence: None)
  Receive Date: 20091105
  Receipt Date: 20091028
  Transmission Date: 20100525
  Serious: Yes (Life-Threatening, Other)
  Sender: FDA-Public Use
  Company Number: -BAXTER-2009BH010024

PATIENT
  Age: 33 Year
  Sex: Female
  Weight: 57 kg

DRUGS (6)
  1. GAMMAGARD LIQUID [Suspect]
     Indication: PEMPHIGUS
     Route: 042
     Dates: start: 20090113, end: 20090113
  2. GAMMAGARD LIQUID [Suspect]
     Indication: OFF LABEL USE
     Route: 042
     Dates: start: 20090113, end: 20090113
  3. GAMMAGARD LIQUID [Suspect]
     Route: 042
     Dates: start: 20090113, end: 20090113
  4. GAMMAGARD LIQUID [Suspect]
     Route: 042
     Dates: start: 20090113, end: 20090113
  5. TYLENOL [Concomitant]
     Route: 048
     Dates: start: 20090113
  6. DIPHENHYDRAMINE [Concomitant]
     Route: 048
     Dates: start: 20090113

REACTIONS (2)
  - ANAPHYLACTIC REACTION [None]
  - DRUG INTOLERANCE [None]
